FAERS Safety Report 10227764 (Version 1)
Quarter: 2014Q2

REPORT INFORMATION
  Report Type: Spontaneous
  Country: US (occurrence: None)
  Receive Date: 20140606
  Receipt Date: 20140606
  Transmission Date: 20141212
  Serious: Yes (Hospitalization)
  Sender: FDA-Public Use
  Company Number: UNT-2014-001344

PATIENT
  Age: 67 Year
  Sex: Male

DRUGS (3)
  1. TYVASO [Suspect]
     Indication: PULMONARY ARTERIAL HYPERTENSION
     Route: 055
     Dates: start: 20131224
  2. TRACLEER (BOSENTAN) UNKNOWN [Concomitant]
  3. REVATIO (SILDENAFIL CITRATE) UNKNOWN [Concomitant]

REACTIONS (1)
  - Anuria [None]
